FAERS Safety Report 11438585 (Version 1)
Quarter: 2015Q3

REPORT INFORMATION
  Report Type: Spontaneous
  Country: US (occurrence: None)
  Receive Date: 20150828
  Receipt Date: 20150828
  Transmission Date: 20151125
  Serious: Yes (Other)
  Sender: FDA-Public Use
  Company Number: 001968232A

PATIENT
  Age: 40 Year
  Sex: Female

DRUGS (4)
  1. MEANINGFUL BEAUTY CINDY CRAWFORD SKIN BRIGHTENING DECOLLETE AND NECK TREATMENT SPF 15 [Suspect]
     Active Substance: AVOBENZONE\OCTINOXATE\OCTISALATE\OXYBENZONE
     Indication: PROPHYLAXIS
     Dosage: DERMAL
     Dates: start: 20150302, end: 20150324
  2. MEANINGFUL BEAUTY CINDY CRAWFORD ANTIOXIDANT SPF 20 UVA/UVB [Suspect]
     Active Substance: AVOBENZONE\OCTINOXATE\OCTISALATE\OXYBENZONE
     Indication: PROPHYLAXIS
     Dosage: DERMAL
     Dates: start: 20150302, end: 20150324
  3. MEANINGFUL BEAUTY CINDY CRAWFORD ANTIOXIDANT SPF 20 UVA/UVB [Suspect]
     Active Substance: AVOBENZONE\OCTINOXATE\OCTISALATE\OXYBENZONE
     Indication: TANNING
     Dosage: DERMAL
     Dates: start: 20150302, end: 20150324
  4. MEANINGFUL BEAUTY CINDY CRAWFORD SKIN BRIGHTENING DECOLLETE AND NECK TREATMENT SPF 15 [Suspect]
     Active Substance: AVOBENZONE\OCTINOXATE\OCTISALATE\OXYBENZONE
     Indication: TANNING
     Dosage: DERMAL
     Dates: start: 20150302, end: 20150324

REACTIONS (6)
  - Scar [None]
  - Accident [None]
  - Burns third degree [None]
  - Burns second degree [None]
  - Thermal burn [None]
  - Burns first degree [None]

NARRATIVE: CASE EVENT DATE: 20150324
